FAERS Safety Report 4329888-X (Version None)
Quarter: 2004Q1

REPORT INFORMATION
  Report Type: 
  Country: None (occurrence: None)
  Receive Date: 20040329
  Receipt Date: 20040316
  Transmission Date: 20041129
  Serious: Yes (Hospitalization)
  Sender: FDA-Public Use
  Company Number: 2004203925DE

PATIENT
  Age: 72 Year
  Sex: Female
  Weight: 78 kg

DRUGS (9)
  1. ARTHROTEC [Suspect]
     Indication: PAIN
     Dosage: 2 DF, QD, ORAL
     Route: 048
     Dates: start: 20031001
  2. ZOLEDRONATE VS PLACEBO () [Suspect]
     Indication: OSTEOPOROSIS POSTMENOPAUSAL
  3. CALCIUM [Concomitant]
  4. VITAMIN D [Concomitant]
  5. CO-DIOVAN [Concomitant]
  6. ASPIRIN [Concomitant]
  7. DIAZEPAM [Concomitant]
  8. ALLOPURINOL [Concomitant]
  9. JODTHYROX (LEVOTHYROXINE SODIUM) [Concomitant]

REACTIONS (1)
  - DIVERTICULITIS [None]
